FAERS Safety Report 8772357 (Version 2)
Quarter: 2012Q4

REPORT INFORMATION
  Report Type: 
  Country: SK (occurrence: SK)
  Receive Date: 20120906
  Receipt Date: 20120925
  Transmission Date: 20130627
  Serious: Yes (Hospitalization, Other)
  Sender: FDA-Public Use
  Company Number: SK-AMGEN-SVKSP2012055421

PATIENT
  Age: 71 Year
  Sex: Female

DRUGS (1)
  1. ETANERCEPT [Suspect]
     Indication: RHEUMATOID ARTHRITIS
     Dosage: UNK
     Dates: start: 20060126, end: 20111124

REACTIONS (5)
  - Rheumatoid arthritis [Unknown]
  - Renal failure [Recovering/Resolving]
  - Cardiac failure [Recovering/Resolving]
  - Pancytopenia [Recovering/Resolving]
  - Urosepsis [Recovering/Resolving]
